FAERS Safety Report 11292225 (Version 5)
Quarter: 2016Q2

REPORT INFORMATION
  Report Type: Report from Study
  Country: JP (occurrence: JP)
  Receive Date: 20150722
  Receipt Date: 20160629
  Transmission Date: 20160815
  Serious: Yes (Hospitalization, Other)
  Sender: FDA-Public Use
  Company Number: JP-EISAI MEDICAL RESEARCH-EC-2015-008627

PATIENT
  Age: 84 Year
  Sex: Female
  Weight: 40 kg

DRUGS (4)
  1. LENVIMA [Suspect]
     Active Substance: LENVATINIB
     Route: 048
     Dates: start: 20150712, end: 20150713
  2. BAYASPIRIN [Suspect]
     Active Substance: ASPIRIN
     Indication: CEREBRAL INFARCTION
     Dosage: UNKNOWN
     Dates: end: 20150716
  3. LENVIMA [Suspect]
     Active Substance: LENVATINIB
     Indication: POORLY DIFFERENTIATED THYROID CARCINOMA
     Route: 048
     Dates: start: 20150626, end: 20150711
  4. HIRUDOID [Concomitant]
     Active Substance: GLYCOSAMINOGLYCANS

REACTIONS (4)
  - Palmar-plantar erythrodysaesthesia syndrome [Recovered/Resolved]
  - Amnesia [Recovered/Resolved]
  - Cerebral haemorrhage [Recovering/Resolving]
  - Peripheral motor neuropathy [Recovered/Resolved]

NARRATIVE: CASE EVENT DATE: 20150714
